FAERS Safety Report 24769248 (Version 1)
Quarter: 2024Q4

REPORT INFORMATION
  Report Type: Report from Study
  Country: US (occurrence: US)
  Receive Date: 20241224
  Receipt Date: 20241224
  Transmission Date: 20250115
  Serious: Yes (Hospitalization)
  Sender: JOHNSON AND JOHNSON
  Company Number: US-JNJFOC-20241239183

PATIENT
  Age: 5 Decade
  Sex: Female

DRUGS (5)
  1. SPRAVATO [Suspect]
     Active Substance: ESKETAMINE
     Indication: Depression
     Dosage: ?84MG, 1 TOTAL DOSES?
     Route: 045
     Dates: start: 20200430, end: 20200430
  2. SPRAVATO [Suspect]
     Active Substance: ESKETAMINE
     Dosage: ?56 MG,22 TOTAL DOSES?
     Route: 045
     Dates: start: 20200511, end: 20240912
  3. SPRAVATO [Suspect]
     Active Substance: ESKETAMINE
     Dosage: ?84MG, 1 TOTAL DOSES?
     Route: 045
     Dates: start: 20240918, end: 20240918
  4. SPRAVATO [Suspect]
     Active Substance: ESKETAMINE
     Dosage: ?56MG, 1 TOTAL DOSES?
     Route: 045
     Dates: start: 20241010, end: 20241010
  5. SPRAVATO [Suspect]
     Active Substance: ESKETAMINE
     Dosage: ?56 MG, 9 TOTAL DOSES?
     Route: 045
     Dates: start: 20200302, end: 20200409

REACTIONS (1)
  - Hospitalisation [Unknown]
